FAERS Safety Report 5207704-1 (Version None)
Quarter: 2006Q4

REPORT INFORMATION
  Report Type: 
  Country: None (occurrence: None)
  Receive Date: 20061030
  Receipt Date: 20060721
  Transmission Date: 20070319
  Serious: No
  Sender: FDA-Public Use
  Company Number: 2006CT000655

PATIENT
  Age: 68 Year
  Sex: Female
  Weight: 66.6788 kg

DRUGS (13)
  1. VENTAVIS [Suspect]
     Indication: PULMONARY HYPERTENSION
     Dosage: 5 UG; 6XD; INH
     Route: 055
     Dates: start: 20051208
  2. LEXAPRO [Concomitant]
  3. ASPIRIN [Concomitant]
  4. CALCIUM CARBONATE [Concomitant]
  5. IPRATROPIUM BROMIDE/SALBUTAMOL SULFATE [Concomitant]
  6. VITAMIN CAP [Concomitant]
  7. UNIVASC [Concomitant]
  8. FOSAMAX [Concomitant]
  9. SPIRONOLACTONE [Concomitant]
  10. ALLEGRA [Concomitant]
  11. NEXIUM [Concomitant]
  12. XOPENEX [Concomitant]
  13. OXYGEN [Concomitant]

REACTIONS (2)
  - COUGH [None]
  - ORAL DISCOMFORT [None]
